FAERS Safety Report 7814535-2 (Version None)
Quarter: 2011Q4

REPORT INFORMATION
  Report Type: 
  Country: None (occurrence: None)
  Receive Date: 20111014
  Receipt Date: 20111003
  Transmission Date: 20120403
  Serious: Yes (Hospitalization)
  Sender: FDA-Public Use
  Company Number: US-US-EMD SERONO, INC.-7087171

PATIENT
  Sex: Female
  Weight: 69 kg

DRUGS (8)
  1. CLONIDINE [Concomitant]
     Indication: HYPERTENSION
  2. NORVASC [Concomitant]
     Indication: HYPERTENSION
     Route: 048
  3. TOPROL-XL [Concomitant]
     Indication: HYPERTENSION
     Route: 048
  4. LISINOPRIL [Concomitant]
     Indication: HYPERTENSION
     Route: 048
  5. ROBAXIN [Concomitant]
     Indication: PAIN
  6. UNSPECIFIED MEDICATION [Concomitant]
  7. DURAGESIC-100 [Concomitant]
     Indication: PAIN
     Route: 062
  8. REBIF [Suspect]
     Indication: MULTIPLE SCLEROSIS
     Route: 058
     Dates: start: 20090413

REACTIONS (6)
  - OESOPHAGEAL SPASM [None]
  - INJECTION SITE ERYTHEMA [None]
  - DEVICE OCCLUSION [None]
  - INJECTION SITE HAEMATOMA [None]
  - INJECTION SITE SWELLING [None]
  - THROMBOSIS [None]
